FAERS Safety Report 5639996-9 (Version None)
Quarter: 2008Q1

REPORT INFORMATION
  Report Type: 
  Country: None (occurrence: None)
  Receive Date: 20080227
  Receipt Date: 20080206
  Transmission Date: 20080703
  Serious: No
  Sender: FDA-Public Use
  Company Number: US-BAYER-200813401NA

PATIENT
  Sex: Female

DRUGS (2)
  1. YAZ [Suspect]
     Route: 048
  2. ANTIBIOTICS (NOS) [Concomitant]

REACTIONS (2)
  - MENSTRUATION DELAYED [None]
  - PREGNANCY ON ORAL CONTRACEPTIVE [None]
